FAERS Safety Report 16191668 (Version 4)
Quarter: 2019Q4

REPORT INFORMATION
  Report Type: Report from Study
  Country: US (occurrence: US)
  Receive Date: 20190412
  Receipt Date: 20191015
  Transmission Date: 20200122
  Serious: Yes (Hospitalization, Other)
  Sender: FDA-Public Use
  Company Number: US-BRISTOL-MYERS SQUIBB COMPANY-BMS-2019-036190

PATIENT
  Age: 35 Year
  Sex: Male
  Weight: 58 kg

DRUGS (2)
  1. NIVOLUMAB [Suspect]
     Active Substance: NIVOLUMAB
     Indication: NEOPLASM SKIN
     Dosage: 166 MILLIGRAM
     Route: 065
     Dates: start: 20190305, end: 20190305
  2. TALIMOGENE LAHERPAREPVEC [Suspect]
     Active Substance: TALIMOGENE LAHERPAREPVEC
     Indication: NEOPLASM SKIN
     Dosage: 3 MILLILITER
     Route: 065
     Dates: start: 20190124, end: 20190305

REACTIONS (8)
  - Acute kidney injury [Recovering/Resolving]
  - Cellulitis [Unknown]
  - Mental status changes [Unknown]
  - Dysphagia [Unknown]
  - Dehydration [Not Recovered/Not Resolved]
  - Pneumonia aspiration [Unknown]
  - Platelet count decreased [Recovered/Resolved]
  - Hypertension [Unknown]

NARRATIVE: CASE EVENT DATE: 20190305
